FAERS Safety Report 20250339 (Version 1)
Quarter: 2021Q4

REPORT INFORMATION
  Report Type: Spontaneous
  Country: US (occurrence: US)
  Receive Date: 20211229
  Receipt Date: 20211229
  Transmission Date: 20220303
  Serious: No
  Sender: FDA-Public Use
  Company Number: US-PFIZER INC-202101807346

PATIENT
  Age: 78 Year
  Sex: Female

DRUGS (2)
  1. CLINDAMYCIN [Suspect]
     Active Substance: CLINDAMYCIN
     Indication: Tooth abscess
     Dosage: UNK
     Dates: start: 2021
  2. ENBREL [Concomitant]
     Active Substance: ETANERCEPT
     Dosage: 50 MG, WEEKLY
     Route: 065

REACTIONS (3)
  - Drug hypersensitivity [Unknown]
  - Abdominal discomfort [Unknown]
  - Rash [Unknown]

NARRATIVE: CASE EVENT DATE: 20211101
